FAERS Safety Report 17003124 (Version 3)
Quarter: 2020Q1

REPORT INFORMATION
  Report Type: Spontaneous
  Country: NL (occurrence: NL)
  Receive Date: 20191107
  Receipt Date: 20200225
  Transmission Date: 20200409
  Serious: Yes (Hospitalization)
  Sender: FDA-Public Use
  Company Number: NL-AUROBINDO-AUR-APL-2019-070661

PATIENT
  Age: 82 Year
  Sex: Female

DRUGS (1)
  1. CINACALCET. [Suspect]
     Active Substance: CINACALCET
     Indication: HYPERCALCAEMIA
     Dosage: UNK
     Route: 065

REACTIONS (4)
  - Hypocalcaemia [Recovered/Resolved]
  - Hypercalcaemia [Unknown]
  - Accidental exposure to product [Unknown]
  - Unevaluable event [Unknown]
